FAERS Safety Report 5489622-7 (Version None)
Quarter: 2007Q4

REPORT INFORMATION
  Report Type: 
  Country: None (occurrence: None)
  Receive Date: 20071009
  Receipt Date: 20070626
  Transmission Date: 20080405
  Serious: Yes (Other)
  Sender: FDA-Public Use
  Company Number: US-JNJFOC20070606517

PATIENT
  Age: 66 Year
  Sex: Female
  Weight: 86.1834 kg

DRUGS (3)
  1. ULTRAM ER [Suspect]
     Indication: PAIN
     Dosage: 100 MG, 1 IN 1 DAY, ORAL
     Route: 048
     Dates: start: 20070604, end: 20070609
  2. METHOTREXATE (METHOTREAXATE) TABLET [Concomitant]
  3. PREDNISONE (PREDNISONE) TABLET [Concomitant]

REACTIONS (3)
  - DIZZINESS [None]
  - DYSPNOEA [None]
  - NAUSEA [None]
